FAERS Safety Report 9888304 (Version 2)
Quarter: 2014Q2

REPORT INFORMATION
  Report Type: Spontaneous
  Country: JP (occurrence: None)
  Receive Date: 20140207
  Receipt Date: 20140424
  Transmission Date: 20141212
  Serious: Yes (Hospitalization)
  Sender: FDA-Public Use
  Company Number: B0966124A

PATIENT
  Sex: Female

DRUGS (4)
  1. EPOPROSTENOL SODIUM [Suspect]
     Indication: PULMONARY ARTERIAL HYPERTENSION
     Dosage: 75MG/KG/MT.
  2. SILDENAFIL CITRATE [Concomitant]
  3. BOSENTAN [Concomitant]
  4. DIURETIC [Concomitant]

REACTIONS (2)
  - Ascites [None]
  - Cardiac failure high output [None]
